FAERS Safety Report 20099164 (Version 1)
Quarter: 2021Q4

REPORT INFORMATION
  Report Type: Spontaneous
  Country: AU (occurrence: AU)
  Receive Date: 20211122
  Receipt Date: 20211122
  Transmission Date: 20220303
  Serious: Yes (Death)
  Sender: FDA-Public Use
  Company Number: AU-PFIZER INC-202101558026

PATIENT
  Age: 72 Year
  Sex: Male

DRUGS (1)
  1. PACLITAXEL [Suspect]
     Active Substance: PACLITAXEL
     Indication: Bladder transitional cell carcinoma recurrent
     Dosage: WEEKLY, CYCLE 1

REACTIONS (1)
  - Neoplasm progression [Fatal]
